FAERS Safety Report 7625270-8 (Version None)
Quarter: 2011Q3

REPORT INFORMATION
  Report Type: 
  Country: None (occurrence: None)
  Receive Date: 20110713
  Receipt Date: 20110628
  Transmission Date: 20111222
  Serious: Yes (Life-Threatening, Hospitalization)
  Sender: FDA-Public Use
  Company Number: 2011MA008154

PATIENT
  Age: 35 Year
  Sex: Male

DRUGS (2)
  1. LITHIUM CARBONATE [Suspect]
     Indication: MANIA
     Dosage: 450 MG; BID; PO
     Route: 048
  2. RISPERIDONE [Suspect]
     Indication: SCHIZOAFFECTIVE DISORDER
     Dosage: 4 MG; QD; PO
     Route: 048

REACTIONS (10)
  - MUSCLE RIGIDITY [None]
  - BLOOD SODIUM INCREASED [None]
  - BLOOD LACTATE DEHYDROGENASE INCREASED [None]
  - BLOOD PH INCREASED [None]
  - LETHARGY [None]
  - HAEMOGLOBIN DECREASED [None]
  - RED BLOOD CELL SEDIMENTATION RATE INCREASED [None]
  - SKIN TURGOR DECREASED [None]
  - OXYGEN SATURATION DECREASED [None]
  - DEHYDRATION [None]
